FAERS Safety Report 10363060 (Version 3)
Quarter: 2015Q2

REPORT INFORMATION
  Report Type: Spontaneous
  Country: US (occurrence: US)
  Receive Date: 20140805
  Receipt Date: 20150514
  Transmission Date: 20150821
  Serious: Yes (Hospitalization, Disabling, Other)
  Sender: FDA-Public Use
  Company Number: US-ELI_LILLY_AND_COMPANY-US201407011164

PATIENT
  Age: 62 Year
  Sex: Male
  Weight: 88.3 kg

DRUGS (6)
  1. GABAPENTIN. [Concomitant]
     Active Substance: GABAPENTIN
     Indication: BACK PAIN
     Dosage: 800 MG, QD
     Route: 065
     Dates: start: 200409
  2. CYMBALTA [Concomitant]
     Active Substance: DULOXETINE HYDROCHLORIDE
     Indication: BACK PAIN
     Dosage: 60 MG, QD
     Route: 065
     Dates: start: 201105
  3. HYDROCODONE [Concomitant]
     Active Substance: HYDROCODONE
     Dosage: UNK, QD
     Dates: start: 200409
  4. AXIRON [Suspect]
     Active Substance: TESTOSTERONE
     Indication: BLOOD TESTOSTERONE DECREASED
     Dosage: 60 MG, QD
     Route: 061
     Dates: start: 20110922, end: 20120611
  5. MELOXICAM. [Concomitant]
     Active Substance: MELOXICAM
     Indication: BACK PAIN
     Dosage: 15 MG, QD
     Route: 065
     Dates: start: 201105
  6. LEVITRA [Suspect]
     Active Substance: VARDENAFIL HYDROCHLORIDE TRIHYDRATE
     Indication: ERECTILE DYSFUNCTION
     Dosage: 10 MG, UNKNOWN
     Route: 048
     Dates: start: 201111

REACTIONS (9)
  - Disturbance in attention [Unknown]
  - Hemiparesis [Not Recovered/Not Resolved]
  - Off label use [Recovered/Resolved]
  - Cerebral infarction [Unknown]
  - Hemiplegia [Unknown]
  - Seizure [Unknown]
  - Myocardial infarction [Unknown]
  - Memory impairment [Unknown]
  - Muscular weakness [Unknown]

NARRATIVE: CASE EVENT DATE: 20120611
